FAERS Safety Report 7734073-5 (Version None)
Quarter: 2011Q3

REPORT INFORMATION
  Report Type: 
  Country: None (occurrence: None)
  Receive Date: 20110907
  Receipt Date: 20110829
  Transmission Date: 20111222
  Serious: Yes (Other)
  Sender: FDA-Public Use
  Company Number: BR-ROCHE-740735

PATIENT
  Sex: Male
  Weight: 68 kg

DRUGS (8)
  1. VITAMIN B COMPLEX CAP [Concomitant]
     Dosage: FREQUENCY: TWICE A WEEK.
  2. LOSARTAN [Concomitant]
     Dosage: FREQUENCY: 1 TAB/DAY.
     Route: 048
  3. FOLIC ACID [Concomitant]
  4. URSACOL [Concomitant]
  5. UNKNOWN MEDICATION FOR PAIN [Concomitant]
     Dosage: FREQUENCY: FOUR TIMES.
  6. SUSTAGEN [Concomitant]
     Indication: VITAMIN SUPPLEMENTATION
  7. PEGINTERFERON ALFA-2A [Suspect]
     Indication: HEPATITIS B
     Dosage: WEEK 43
     Route: 058
     Dates: start: 20100401, end: 20110223
  8. ENTECAVIR [Concomitant]
     Indication: HEPATITIS B
     Dosage: FREQUENCY: 0.5 TAB/DAY.

REACTIONS (18)
  - DRUG INTOLERANCE [None]
  - EPISTAXIS [None]
  - PANCREATIC CYST [None]
  - WEIGHT DECREASED [None]
  - DECREASED APPETITE [None]
  - ANAEMIA [None]
  - NAUSEA [None]
  - PYREXIA [None]
  - PLATELET COUNT DECREASED [None]
  - ASTHENIA [None]
  - SERUM FERRITIN INCREASED [None]
  - WHITE BLOOD CELL COUNT DECREASED [None]
  - NEUROLOGICAL SYMPTOM [None]
  - IMPAIRED HEALING [None]
  - BLOOD PRESSURE INCREASED [None]
  - TOOTH DISORDER [None]
  - CHILLS [None]
  - MUSCLE SPASMS [None]
